FAERS Safety Report 17054907 (Version 2)
Quarter: 2020Q2

REPORT INFORMATION
  Report Type: Report from Study
  Country: US (occurrence: US)
  Receive Date: 20191120
  Receipt Date: 20200625
  Transmission Date: 20200713
  Serious: Yes (Hospitalization, Other)
  Sender: FDA-Public Use
  Company Number: US-SA-2019SA312724

PATIENT

DRUGS (3)
  1. DUPILUMAB [Suspect]
     Active Substance: DUPILUMAB
     Indication: AUTOIMMUNE THYROIDITIS
     Dosage: 300 MG, QOW
     Route: 058
     Dates: start: 2019, end: 2020
  2. DUPILUMAB [Suspect]
     Active Substance: DUPILUMAB
     Dosage: 300 MG, QOW
     Route: 058
     Dates: start: 20200522
  3. DUPILUMAB [Suspect]
     Active Substance: DUPILUMAB
     Indication: ASTHMA
     Dosage: 600 MG, 1X
     Route: 058
     Dates: start: 20190412, end: 20190412

REACTIONS (9)
  - Tachycardia [Recovered/Resolved]
  - Product use in unapproved indication [Unknown]
  - Thrombosis [Recovered/Resolved]
  - Procedural failure [Not Recovered/Not Resolved]
  - Asthma [Recovered/Resolved]
  - Product use issue [Unknown]
  - Therapeutic response decreased [Unknown]
  - Pulmonary thrombosis [Recovered/Resolved]
  - Product dose omission [Unknown]

NARRATIVE: CASE EVENT DATE: 2019
